FAERS Safety Report 10455996 (Version 1)
Quarter: 2014Q3

REPORT INFORMATION
  Report Type: Spontaneous
  Country: US (occurrence: None)
  Receive Date: 20140818
  Receipt Date: 20140818
  Transmission Date: 20150326
  Serious: Yes (Hospitalization, Other)
  Sender: FDA-Public Use
  Company Number: 20120718VANCO3161

PATIENT
  Sex: Female

DRUGS (1)
  1. VANCOCIN [Suspect]
     Active Substance: VANCOMYCIN HYDROCHLORIDE
     Indication: CLOSTRIDIUM DIFFICILE INFECTION
     Dosage: 500 MG (125 MG, 4 IN 1 D)
     Route: 048
     Dates: start: 201102, end: 201202

REACTIONS (2)
  - Vertigo [None]
  - Deafness neurosensory [None]

NARRATIVE: CASE EVENT DATE: 20120401
